FAERS Safety Report 4875693-5 (Version None)
Quarter: 2006Q1

REPORT INFORMATION
  Report Type: 
  Country: None (occurrence: None)
  Receive Date: 20060105
  Receipt Date: 20051222
  Transmission Date: 20060701
  Serious: Yes (Life-Threatening, Hospitalization)
  Sender: FDA-Public Use
  Company Number: B0404025A

PATIENT
  Age: 31 Year
  Sex: Male
  Weight: 65.8623 kg

DRUGS (1)
  1. FLOVENT [Suspect]
     Indication: ASTHMA
     Dosage: 200 MCG / PER DAY / INHALED
     Route: 055
     Dates: start: 20030201

REACTIONS (20)
  - BACTERIAL INFECTION [None]
  - BLOOD IMMUNOGLOBULIN E INCREASED [None]
  - COAGULOPATHY [None]
  - DISSEMINATED INTRAVASCULAR COAGULATION [None]
  - FAT REDISTRIBUTION [None]
  - HEPATIC ATROPHY [None]
  - HEPATITIS [None]
  - HERPES SIMPLEX [None]
  - HERPES VIRUS INFECTION [None]
  - HERPES ZOSTER [None]
  - IMMUNE SYSTEM DISORDER [None]
  - LOCAL SWELLING [None]
  - LYMPHADENOPATHY [None]
  - OESOPHAGITIS [None]
  - PERFORATED ULCER [None]
  - PHARYNGEAL ULCERATION [None]
  - RENAL DISORDER [None]
  - RESPIRATORY RATE INCREASED [None]
  - THROMBOCYTOPENIA [None]
  - VENTRICULAR TACHYCARDIA [None]
